FAERS Safety Report 12416636 (Version 1)
Quarter: 2016Q2

REPORT INFORMATION
  Report Type: Spontaneous
  Country: CN (occurrence: CN)
  Receive Date: 20160530
  Receipt Date: 20160530
  Transmission Date: 20160815
  Serious: Yes (Other)
  Sender: FDA-Public Use
  Company Number: CN-JNJFOC-20130812152

PATIENT

DRUGS (2)
  1. SPORANOX [Suspect]
     Active Substance: ITRACONAZOLE
     Indication: PULMONARY MYCOSIS
     Route: 041
  2. SODIUM CHLORIDE. [Suspect]
     Active Substance: SODIUM CHLORIDE
     Indication: PULMONARY MYCOSIS
     Dosage: 0.9%
     Route: 042

REACTIONS (5)
  - Renal injury [Unknown]
  - Drug ineffective [Unknown]
  - Headache [Unknown]
  - Chills [Unknown]
  - Rash [Unknown]
